FAERS Safety Report 10152560 (Version 1)
Quarter: 2014Q2

REPORT INFORMATION
  Report Type: Spontaneous
  Country: US (occurrence: None)
  Receive Date: 20140502
  Receipt Date: 20140502
  Transmission Date: 20141212
  Serious: Yes (Hospitalization)
  Sender: FDA-Public Use
  Company Number: None

PATIENT
  Age: 44 Year
  Sex: Female

DRUGS (1)
  1. INTELENCE [Suspect]
     Indication: HIV INFECTION
     Dosage: 200 MG TAKE 1 BID BID ORAL
     Route: 048
     Dates: start: 20140425

REACTIONS (2)
  - Tremor [None]
  - Convulsion [None]
